FAERS Safety Report 7410713-5 (Version None)
Quarter: 2011Q2

REPORT INFORMATION
  Report Type: 
  Country: None (occurrence: None)
  Receive Date: 20110405
  Receipt Date: 20110323
  Transmission Date: 20111010
  Serious: Yes (Other)
  Sender: FDA-Public Use
  Company Number: 1000019642

PATIENT
  Sex: Female

DRUGS (1)
  1. MEMANTINE [Suspect]
     Dosage: 10 MG (10 MG, 1 IN 1 D), ORAL
     Route: 048

REACTIONS (5)
  - ABNORMAL BEHAVIOUR [None]
  - PSYCHIATRIC SYMPTOM [None]
  - CONDITION AGGRAVATED [None]
  - DISORIENTATION [None]
  - HALLUCINATION [None]
